FAERS Safety Report 10398494 (Version 1)
Quarter: 2014Q3

REPORT INFORMATION
  Report Type: Spontaneous
  Country: US (occurrence: US)
  Receive Date: 20140821
  Receipt Date: 20140821
  Transmission Date: 20150326
  Serious: No
  Sender: FDA-Public Use
  Company Number: US-ZOGENIX, INC.-2014ZX000206

PATIENT
  Age: 37 Year
  Sex: Female

DRUGS (8)
  1. NORCO [Concomitant]
     Active Substance: ACETAMINOPHEN\HYDROCODONE BITARTRATE
     Dosage: 10/325
     Route: 048
     Dates: end: 20140626
  2. ZOHYDRO [Suspect]
     Active Substance: HYDROCODONE BITARTRATE
     Indication: HAEMATURIA
     Route: 048
     Dates: start: 20140626
  3. NAPROSYN [Concomitant]
     Active Substance: NAPROXEN
     Indication: PAIN
     Route: 048
  4. ZANAFLEX [Concomitant]
     Active Substance: TIZANIDINE HYDROCHLORIDE
     Indication: PAIN
  5. ZOHYDRO [Suspect]
     Active Substance: HYDROCODONE BITARTRATE
     Indication: CYSTITIS INTERSTITIAL
  6. NEURONTIN [Concomitant]
     Active Substance: GABAPENTIN
     Indication: PAIN
     Route: 048
  7. ZOHYDRO [Suspect]
     Active Substance: HYDROCODONE BITARTRATE
     Indication: GROIN PAIN
     Route: 048
     Dates: start: 20140618, end: 20140626
  8. NERVE BLOCK [Concomitant]
     Indication: PAIN

REACTIONS (1)
  - Breakthrough pain [Unknown]

NARRATIVE: CASE EVENT DATE: 20140618
